FAERS Safety Report 6134157-1 (Version None)
Quarter: 2009Q1

REPORT INFORMATION
  Report Type: 
  Country: None (occurrence: None)
  Receive Date: 20090325
  Receipt Date: 20090311
  Transmission Date: 20090719
  Serious: Yes (Death)
  Sender: FDA-Public Use
  Company Number: VAL_00243_2009

PATIENT
  Sex: Male

DRUGS (2)
  1. ROCALTROL [Suspect]
     Indication: PROSTATE CANCER METASTATIC
     Dosage: (0.5 UG/KG 1X/WEEK ORAL)
     Route: 048
  2. TAXOTERE [Suspect]
     Indication: PROSTATE CANCER METASTATIC
     Dosage: (36 MG/M2 1X/WEEK)

REACTIONS (1)
  - PNEUMONIA [None]
